FAERS Safety Report 25968228 (Version 1)
Quarter: 2025Q4

REPORT INFORMATION
  Report Type: Spontaneous
  Country: EU (occurrence: EU)
  Receive Date: 20251028
  Receipt Date: 20251028
  Transmission Date: 20260118
  Serious: Yes (Hospitalization, Other)
  Sender: AUROBINDO
  Company Number: EU-BRISTOL-MYERS SQUIBB COMPANY-2023-080795

PATIENT
  Age: 70 Year
  Sex: Female

DRUGS (19)
  1. CARBOPLATIN [Suspect]
     Active Substance: CARBOPLATIN
     Indication: Non-small cell lung cancer
     Dosage: 400 MILLIGRAM
     Route: 042
     Dates: start: 20230328, end: 20230419
  2. CARBOPLATIN [Suspect]
     Active Substance: CARBOPLATIN
     Dosage: 400 MILLIGRAM (400 MG (FREQUENCY: DAY 1, 8, 15)
     Route: 042
     Dates: start: 20230328
  3. OPDIVO [Suspect]
     Active Substance: NIVOLUMAB
     Indication: Non-small cell lung cancer
     Dosage: 360 MILLIGRAM (1080 MG, QW (360 MG, TIW)
     Route: 042
     Dates: start: 20230328
  4. OPDIVO [Suspect]
     Active Substance: NIVOLUMAB
     Dosage: 360 MILLIGRAM (1080 MG, QW (360 MG, TIW)
     Route: 042
     Dates: start: 20230328
  5. OPDIVO [Suspect]
     Active Substance: NIVOLUMAB
     Dosage: 360 MILLIGRAM (1080 MG, QW (360 MG, TIW)
     Route: 042
     Dates: start: 20230328, end: 20230621
  6. YERVOY [Suspect]
     Active Substance: IPILIMUMAB
     Indication: Non-small cell lung cancer
     Dosage: 80 MILLIGRAM
     Route: 042
     Dates: start: 20230328, end: 20230621
  7. YERVOY [Suspect]
     Active Substance: IPILIMUMAB
     Dosage: 80 MILLIGRAM
     Route: 042
     Dates: start: 20230328
  8. GRANISETRON [Concomitant]
     Active Substance: GRANISETRON
     Indication: Product used for unknown indication
     Dosage: UNK
     Route: 065
     Dates: start: 20230628, end: 20230702
  9. POTASSIUM CHLORIDE [Concomitant]
     Active Substance: POTASSIUM CHLORIDE
     Indication: Prophylaxis
     Dosage: UNK
     Route: 065
     Dates: start: 20230630, end: 20230701
  10. Vomex [Concomitant]
     Indication: Product used for unknown indication
     Dosage: UNK
     Route: 065
     Dates: start: 20230608, end: 20230613
  11. Vomex [Concomitant]
     Dosage: UNK
     Route: 065
     Dates: start: 20230707, end: 20230708
  12. Vomex [Concomitant]
     Dosage: UNK
     Route: 065
     Dates: start: 20230712, end: 20230712
  13. MCP [Concomitant]
     Active Substance: METOCLOPRAMIDE HYDROCHLORIDE
     Indication: Product used for unknown indication
     Dosage: UNK
     Route: 065
     Dates: start: 20230608, end: 20230614
  14. MCP [Concomitant]
     Active Substance: METOCLOPRAMIDE HYDROCHLORIDE
     Dosage: UNK
     Route: 065
     Dates: start: 20230707, end: 20230710
  15. PANTOPRAZOLE [Concomitant]
     Active Substance: PANTOPRAZOLE
     Indication: Prophylaxis
     Dosage: UNK
     Route: 065
     Dates: start: 20230708, end: 20230710
  16. PANTOPRAZOLE [Concomitant]
     Active Substance: PANTOPRAZOLE
     Dosage: UNK
     Route: 065
     Dates: start: 20230711
  17. PREDNISOLONE [Concomitant]
     Active Substance: PREDNISOLONE
     Indication: Prophylaxis
     Dosage: UNK
     Route: 065
     Dates: start: 20230708, end: 20230710
  18. PREDNISOLONE [Concomitant]
     Active Substance: PREDNISOLONE
     Dosage: UNK
     Route: 065
     Dates: start: 20230711
  19. SODIUM PICOSULFATE [Concomitant]
     Active Substance: SODIUM PICOSULFATE
     Indication: Product used for unknown indication
     Dosage: UNK
     Route: 065
     Dates: start: 20230610, end: 20230610

REACTIONS (9)
  - Syncope [Recovered/Resolved]
  - Vomiting [Unknown]
  - Renal impairment [Unknown]
  - Immune-mediated enterocolitis [Recovered/Resolved]
  - Asthenia [Unknown]
  - Dysphagia [Unknown]
  - General physical health deterioration [Unknown]
  - Hypophagia [Unknown]
  - Off label use [Unknown]

NARRATIVE: CASE EVENT DATE: 20230101
